FAERS Safety Report 4450163-7 (Version None)
Quarter: 2004Q3

REPORT INFORMATION
  Report Type: 
  Country: None (occurrence: None)
  Receive Date: 20040915
  Receipt Date: 20040903
  Transmission Date: 20050211
  Serious: Yes (Other)
  Sender: FDA-Public Use
  Company Number: PHFR2004GB03400

PATIENT
  Age: 54 Year
  Sex: Female

DRUGS (2)
  1. TEGRETOL [Suspect]
     Route: 048
  2. LAMOTRIGINE [Concomitant]
     Route: 065

REACTIONS (2)
  - BILE DUCT CANCER [None]
  - HEPATIC FUNCTION ABNORMAL [None]
